FAERS Safety Report 19348837 (Version 2)
Quarter: 2021Q2

REPORT INFORMATION
  Report Type: Report from Study
  Country: None (occurrence: US)
  Receive Date: 20210531
  Receipt Date: 20210607
  Transmission Date: 20210717
  Serious: Yes (Other)
  Sender: FDA-Public Use
  Company Number: US-ABBVIE-21K-163-3926348-00

PATIENT
  Age: 69 Year
  Sex: Male
  Weight: 74.91 kg

DRUGS (8)
  1. COVID?19 VACCINE NOS. [Concomitant]
     Active Substance: COVID-19 VACCINE NOS
     Indication: COVID-19 IMMUNISATION
     Dosage: 1 DOSE?PFIZER
     Route: 030
     Dates: start: 202104, end: 202104
  2. MAGNESIUM [Concomitant]
     Active Substance: MAGNESIUM
     Indication: PRODUCT USED FOR UNKNOWN INDICATION
  3. MELATONIN [Concomitant]
     Active Substance: MELATONIN
     Indication: PRODUCT USED FOR UNKNOWN INDICATION
  4. DUOPA [Suspect]
     Active Substance: CARBIDOPA\LEVODOPA
  5. VITAMIN D3 [Concomitant]
     Active Substance: CHOLECALCIFEROL
     Indication: PRODUCT USED FOR UNKNOWN INDICATION
  6. COVID?19 VACCINE NOS. [Concomitant]
     Active Substance: COVID-19 VACCINE NOS
     Dosage: 2 DOSE?PFIZER
     Route: 030
     Dates: start: 202104, end: 202104
  7. DUOPA [Suspect]
     Active Substance: CARBIDOPA\LEVODOPA
     Indication: PRODUCT USED FOR UNKNOWN INDICATION
     Route: 050
     Dates: start: 20170322
  8. POTASSIUM [Concomitant]
     Active Substance: POTASSIUM
     Indication: PRODUCT USED FOR UNKNOWN INDICATION

REACTIONS (14)
  - Living in residential institution [Not Recovered/Not Resolved]
  - Stoma site reaction [Not Recovered/Not Resolved]
  - Paranoia [Recovering/Resolving]
  - Anxiety [Not Recovered/Not Resolved]
  - Delusion [Recovering/Resolving]
  - Rapid eye movements sleep abnormal [Recovering/Resolving]
  - Unevaluable event [Not Recovered/Not Resolved]
  - Tremor [Not Recovered/Not Resolved]
  - Off label use [Not Recovered/Not Resolved]
  - Dementia [Not Recovered/Not Resolved]
  - Fear [Recovering/Resolving]
  - Device kink [Unknown]
  - Hallucination [Recovering/Resolving]
  - Irritability [Recovering/Resolving]

NARRATIVE: CASE EVENT DATE: 201703
